FAERS Safety Report 21099373 (Version 1)
Quarter: 2022Q3

REPORT INFORMATION
  Report Type: Spontaneous
  Country: GB (occurrence: GB)
  Receive Date: 20220719
  Receipt Date: 20220719
  Transmission Date: 20221027
  Serious: Yes (Other)
  Sender: FDA-Public Use
  Company Number: None

PATIENT

DRUGS (2)
  1. PAXLOVID [Suspect]
     Active Substance: NIRMATRELVIR\RITONAVIR
     Indication: COVID-19 treatment
     Dosage: UNK
     Dates: start: 20220401
  2. THALIDOMIDE [Suspect]
     Active Substance: THALIDOMIDE
     Dosage: 100 MG, 1X/DAY
     Dates: start: 20220403

REACTIONS (7)
  - Heart rate increased [Unknown]
  - Reflux laryngitis [Unknown]
  - Vision blurred [Unknown]
  - Rash [Unknown]
  - Feeling of body temperature change [Unknown]
  - Dyspepsia [Unknown]
  - Insomnia [Unknown]

NARRATIVE: CASE EVENT DATE: 20220403
